FAERS Safety Report 10636371 (Version 1)
Quarter: 2014Q4

REPORT INFORMATION
  Report Type: Spontaneous
  Country: US (occurrence: US)
  Receive Date: 20141206
  Receipt Date: 20141206
  Transmission Date: 20150529
  Serious: No
  Sender: FDA-Public Use
  Company Number: US-GLAXOSMITHKLINE-A1087841A

PATIENT
  Sex: Female

DRUGS (2)
  1. ACZONE [Concomitant]
     Active Substance: DAPSONE
  2. VELTIN [Suspect]
     Active Substance: CLINDAMYCIN PHOSPHATE\TRETINOIN
     Indication: ACNE
     Dosage: 1 APPLICATION DAILY.
     Route: 061
     Dates: start: 201408

REACTIONS (1)
  - Exposure during pregnancy [Unknown]
